FAERS Safety Report 5937492-2 (Version None)
Quarter: 2008Q4

REPORT INFORMATION
  Report Type: 
  Country: None (occurrence: None)
  Receive Date: 20081031
  Receipt Date: 20081028
  Transmission Date: 20090506
  Serious: Yes (Other)
  Sender: FDA-Public Use
  Company Number: D0058456A

PATIENT
  Age: 65 Year
  Sex: Female

DRUGS (2)
  1. TYVERB [Suspect]
     Indication: BREAST CANCER
     Dosage: 1250MG PER DAY
     Route: 048
     Dates: start: 20080101, end: 20080101
  2. XELODA [Concomitant]
     Indication: BREAST CANCER
     Route: 048

REACTIONS (1)
  - APHASIA [None]
